FAERS Safety Report 6529795-8 (Version None)
Quarter: 2010Q1

REPORT INFORMATION
  Report Type: 
  Country: None (occurrence: None)
  Receive Date: 20100107
  Receipt Date: 20100104
  Transmission Date: 20100710
  Serious: Yes (Hospitalization)
  Sender: FDA-Public Use
  Company Number: A0811660A

PATIENT
  Sex: Male

DRUGS (4)
  1. ADVAIR DISKUS 100/50 [Suspect]
     Indication: DRUG USE FOR UNKNOWN INDICATION
     Route: 055
  2. ALBUTEROL [Suspect]
     Indication: ASTHMA
     Route: 065
     Dates: start: 20091001
  3. DECADRON [Concomitant]
     Indication: ASTHMA
     Route: 042
     Dates: start: 20091001
  4. ATROVENT [Concomitant]
     Indication: ASTHMA
     Dates: start: 20091001

REACTIONS (1)
  - ADVERSE EVENT [None]
